FAERS Safety Report 16566978 (Version 1)
Quarter: 2019Q3

REPORT INFORMATION
  Report Type: Spontaneous
  Country: RO (occurrence: RO)
  Receive Date: 20190712
  Receipt Date: 20190712
  Transmission Date: 20191004
  Serious: Yes (Other)
  Sender: FDA-Public Use
  Company Number: RO-PFIZER INC-2019177970

PATIENT
  Age: 58 Year
  Sex: Male
  Weight: 80 kg

DRUGS (5)
  1. EUTHYROX [Concomitant]
     Active Substance: LEVOTHYROXINE SODIUM
     Dosage: 50 (UNITS UNKNOWN)
  2. ENTECAVIR TEVA [Concomitant]
     Active Substance: ENTECAVIR
     Dosage: UNK
  3. MEDROL [METHYLPREDNISOLONE ACETATE] [Concomitant]
     Active Substance: METHYLPREDNISOLONE ACETATE
     Dosage: 16 MG, UNK
  4. SUTENT [Suspect]
     Active Substance: SUNITINIB MALATE
     Indication: METASTATIC RENAL CELL CARCINOMA
     Dosage: 50 MG, CYCLIC (28 DAYS CURE/ 14 DAYS PAUSE)
     Route: 048
     Dates: start: 20181106, end: 20190417
  5. OMEZ [OMEPRAZOLE] [Concomitant]
     Active Substance: OMEPRAZOLE
     Dosage: UNK

REACTIONS (3)
  - Loss of consciousness [Unknown]
  - Neoplasm progression [Unknown]
  - Chest pain [Unknown]

NARRATIVE: CASE EVENT DATE: 20190416
